FAERS Safety Report 10258371 (Version 1)
Quarter: 2014Q2

REPORT INFORMATION
  Report Type: Spontaneous
  Country: SE (occurrence: SE)
  Receive Date: 20140625
  Receipt Date: 20140625
  Transmission Date: 20141212
  Serious: Yes (Hospitalization)
  Sender: FDA-Public Use
  Company Number: SE-PFIZER INC-2014172934

PATIENT
  Age: 28 Year
  Sex: Female

DRUGS (4)
  1. LYRICA [Suspect]
     Dosage: 30 CAPSULES
  2. STESOLID [Suspect]
     Dosage: UNK
  3. NOZINAN [Suspect]
     Dosage: UNK
  4. IMOVANE [Suspect]
     Dosage: APPROXIMATELY 30 TABLETS

REACTIONS (5)
  - Intentional overdose [Unknown]
  - Poisoning [Unknown]
  - Intentional self-injury [Unknown]
  - Depressed level of consciousness [Unknown]
  - Normochromic normocytic anaemia [Unknown]
